FAERS Safety Report 5885489-3 (Version None)
Quarter: 2008Q3

REPORT INFORMATION
  Report Type: 
  Country: None (occurrence: None)
  Receive Date: 20080915
  Receipt Date: 20080915
  Transmission Date: 20090109
  Serious: Yes (Other)
  Sender: FDA-Public Use
  Company Number: None

PATIENT
  Age: 68 Year
  Sex: Female

DRUGS (6)
  1. PREVACID [Suspect]
     Dosage: ONCE A DAY ORALLY
     Route: 048
     Dates: start: 20080827, end: 20080827
  2. HYDROCHLOROTHIAZIDE [Concomitant]
  3. LISINOPRIL [Concomitant]
  4. LIPITOR [Concomitant]
  5. TIAZAC [Concomitant]
  6. ASPIRIN [Concomitant]

REACTIONS (3)
  - FALL [None]
  - HYPERSENSITIVITY [None]
  - HYPOTENSION [None]
